FAERS Safety Report 20108280 (Version 5)
Quarter: 2023Q4

REPORT INFORMATION
  Report Type: Report from Study
  Country: CA (occurrence: CA)
  Receive Date: 20211124
  Receipt Date: 20231211
  Transmission Date: 20240110
  Serious: Yes (Other)
  Sender: FDA-Public Use
  Company Number: CA-009507513-1808CAN005833

PATIENT
  Age: 68 Year
  Sex: Male
  Weight: 71.4 kg

DRUGS (41)
  1. PEMBROLIZUMAB [Suspect]
     Active Substance: PEMBROLIZUMAB
     Indication: Non-small cell lung cancer
     Dosage: 150 MG (ALSO REPORTED AS 144 MG) Q3W, STRENGTH: 2MG/KG
     Route: 042
     Dates: start: 20160429
  2. PEMBROLIZUMAB [Suspect]
     Active Substance: PEMBROLIZUMAB
     Indication: Metastatic renal cell carcinoma
     Dosage: 200 MG, Q3W, STRENGTH: 2MG/KG
     Route: 042
     Dates: start: 20180830
  3. PEMBROLIZUMAB [Suspect]
     Active Substance: PEMBROLIZUMAB
     Dosage: 150 MG, Q3W, STRENGTH: 2MG/KG
     Route: 042
     Dates: start: 20180920
  4. PEMBROLIZUMAB [Suspect]
     Active Substance: PEMBROLIZUMAB
     Dosage: 146 MG, Q3W, STRENGTH: 2MG/KG
     Route: 042
     Dates: start: 20181011
  5. PEMBROLIZUMAB [Suspect]
     Active Substance: PEMBROLIZUMAB
     Dosage: 150 MG, Q3W, STRENGTH: 2MG/KG
     Route: 042
     Dates: start: 20181101
  6. PEMBROLIZUMAB [Suspect]
     Active Substance: PEMBROLIZUMAB
     Dosage: 150 MG, Q3W, STRENGTH: 2MG/KG
     Route: 042
     Dates: start: 20181122
  7. PEMBROLIZUMAB [Suspect]
     Active Substance: PEMBROLIZUMAB
     Dosage: 151 MG, Q3W, STRENGTH: 2MG/KG
     Route: 042
     Dates: start: 20181213
  8. PEMBROLIZUMAB [Suspect]
     Active Substance: PEMBROLIZUMAB
     Dosage: 151 MG, Q3W, STRENGTH: 2MG/KG
     Route: 042
     Dates: start: 20190124
  9. PEMBROLIZUMAB [Suspect]
     Active Substance: PEMBROLIZUMAB
     Dosage: 151 MG, Q3W, STRENGTH: 2MG/KG
     Route: 042
     Dates: start: 20190418
  10. PEMBROLIZUMAB [Suspect]
     Active Substance: PEMBROLIZUMAB
     Dosage: 200 MG, Q3W, STRENGTH: 2MG/KG
     Route: 042
     Dates: start: 20190530
  11. PEMBROLIZUMAB [Suspect]
     Active Substance: PEMBROLIZUMAB
     Dosage: 200 MG, Q3W, STRENGTH: 2MG/KG
     Route: 042
     Dates: start: 2019
  12. PEMBROLIZUMAB [Suspect]
     Active Substance: PEMBROLIZUMAB
     Dosage: 200 MG, Q3W, STRENGTH: 2MG/KG
     Route: 042
     Dates: start: 2019
  13. PEMBROLIZUMAB [Suspect]
     Active Substance: PEMBROLIZUMAB
     Dosage: 200 MG, Q3W, STRENGTH: 2MG/KG
     Route: 042
     Dates: start: 2019
  14. PEMBROLIZUMAB [Suspect]
     Active Substance: PEMBROLIZUMAB
     Dosage: 151 MG, Q3W, STRENGTH: 2MG/KG
     Route: 042
     Dates: start: 2019
  15. PEMBROLIZUMAB [Suspect]
     Active Substance: PEMBROLIZUMAB
     Dosage: 150 MG, Q3W, STRENGTH: 2MG/KG
     Route: 042
     Dates: start: 20191021
  16. PEMBROLIZUMAB [Suspect]
     Active Substance: PEMBROLIZUMAB
     Dosage: 139 MG, Q3W, STRENGTH: 2MG/KG
     Route: 042
     Dates: start: 20191022
  17. PEMBROLIZUMAB [Suspect]
     Active Substance: PEMBROLIZUMAB
     Dosage: 146MG, Q3W, STRENGTH: 2MG/KG
     Route: 042
     Dates: start: 2020
  18. PEMBROLIZUMAB [Suspect]
     Active Substance: PEMBROLIZUMAB
     Dosage: 143 MG Q3W, STRENGTH: 2MG/KG
     Route: 042
     Dates: start: 20200305
  19. PEMBROLIZUMAB [Suspect]
     Active Substance: PEMBROLIZUMAB
     Dosage: 142 MG Q3W
     Route: 042
     Dates: start: 20200327
  20. PEMBROLIZUMAB [Suspect]
     Active Substance: PEMBROLIZUMAB
     Dosage: 144 MG Q3W, STRENGTH: 2MG/KG
     Route: 042
     Dates: start: 20200416
  21. PEMBROLIZUMAB [Suspect]
     Active Substance: PEMBROLIZUMAB
     Dosage: 144 MG Q3W, STRENGTH: 2MG/KG
     Route: 042
     Dates: start: 2020
  22. PEMBROLIZUMAB [Suspect]
     Active Substance: PEMBROLIZUMAB
     Dosage: 144 MG Q3W, STRENGTH: 2MG/KG
     Route: 042
     Dates: start: 20200618
  23. PEMBROLIZUMAB [Suspect]
     Active Substance: PEMBROLIZUMAB
     Dosage: 200 MG, Q3W, STRENGTH: 2 MG/KG
     Route: 042
     Dates: start: 20200730
  24. PEMBROLIZUMAB [Suspect]
     Active Substance: PEMBROLIZUMAB
     Dosage: 200 MG, Q3W, STRENGTH: 2 MG/KG
     Route: 042
     Dates: start: 20200820
  25. PEMBROLIZUMAB [Suspect]
     Active Substance: PEMBROLIZUMAB
     Dosage: 144 MG Q3W, STRENGTH: 2MG/KG
     Route: 042
     Dates: start: 20200910
  26. PEMBROLIZUMAB [Suspect]
     Active Substance: PEMBROLIZUMAB
     Dosage: 144 MG Q3W, STRENGTH: 2MG/KG
     Route: 042
     Dates: start: 20200910
  27. PEMBROLIZUMAB [Suspect]
     Active Substance: PEMBROLIZUMAB
     Dosage: 144 MILLIGRAM, Q3W, STRENGTH: 2MG/KG
     Route: 042
     Dates: start: 20201119
  28. PEMBROLIZUMAB [Suspect]
     Active Substance: PEMBROLIZUMAB
     Dosage: 140 MG/  Q3 WEEKS
     Route: 065
  29. PEMBROLIZUMAB [Suspect]
     Active Substance: PEMBROLIZUMAB
     Dosage: 138 MG/  Q3 WEEKS
     Route: 065
     Dates: start: 20210728
  30. PEMBROLIZUMAB [Suspect]
     Active Substance: PEMBROLIZUMAB
     Dosage: 138 MG/Q3 WEEKS
     Route: 065
     Dates: start: 20210818
  31. PEMBROLIZUMAB [Suspect]
     Active Substance: PEMBROLIZUMAB
     Dosage: 136 MILLIGRAM, Q3W
     Route: 065
     Dates: start: 20220406, end: 20220406
  32. PEMBROLIZUMAB [Suspect]
     Active Substance: PEMBROLIZUMAB
     Dosage: 134 MG( 2MG/KG)IV/ Q3WKS
     Route: 042
     Dates: start: 20220518, end: 20220518
  33. PEMBROLIZUMAB [Suspect]
     Active Substance: PEMBROLIZUMAB
     Dosage: 138 UNK
     Route: 042
  34. PEMBROLIZUMAB [Suspect]
     Active Substance: PEMBROLIZUMAB
     Dosage: 200MG IV/Q3WEEKS
     Route: 042
     Dates: start: 20221212
  35. SYNTHROID [Suspect]
     Active Substance: LEVOTHYROXINE SODIUM
     Dosage: UNK
     Route: 065
  36. SYNTHROID [Suspect]
     Active Substance: LEVOTHYROXINE SODIUM
     Dosage: UNK
     Route: 065
  37. NEXIUM I.V. [Concomitant]
     Active Substance: ESOMEPRAZOLE SODIUM
     Dosage: UNK
     Route: 065
  38. FLOMAX [Concomitant]
     Active Substance: TAMSULOSIN HYDROCHLORIDE
     Dosage: UNK
     Route: 065
  39. COLACE [Concomitant]
     Active Substance: DOCUSATE SODIUM
     Dosage: UNK
     Route: 065
  40. SYNTHROID [Concomitant]
     Active Substance: LEVOTHYROXINE SODIUM
     Dosage: UNK
     Route: 065
  41. METFORMIN [Concomitant]
     Active Substance: METFORMIN HYDROCHLORIDE
     Dosage: UNK
     Route: 065

REACTIONS (84)
  - Lymphadenectomy [Recovered/Resolved]
  - CSF test abnormal [Unknown]
  - Malignant neoplasm progression [Unknown]
  - Non-small cell lung cancer recurrent [Unknown]
  - Cataract [Unknown]
  - Arteriosclerosis coronary artery [Unknown]
  - Radiation pneumonitis [Unknown]
  - Parathyroid tumour benign [Unknown]
  - Colitis ischaemic [Unknown]
  - Purulent discharge [Recovered/Resolved]
  - Blood pressure abnormal [Unknown]
  - Vein disorder [Unknown]
  - Heart rate abnormal [Unknown]
  - Body temperature abnormal [Unknown]
  - Vital functions abnormal [Unknown]
  - Pulse abnormal [Unknown]
  - Appetite disorder [Unknown]
  - Pulmonary mass [Unknown]
  - Pulmonary mass [Unknown]
  - Bone lesion [Unknown]
  - Lymphadenopathy [Unknown]
  - Lymphadenopathy mediastinal [Unknown]
  - Decreased activity [Unknown]
  - Lung opacity [Unknown]
  - Thyroid mass [Unknown]
  - Benign neoplasm of adrenal gland [Unknown]
  - Computerised tomogram liver abnormal [Unknown]
  - Computerised tomogram kidney abnormal [Unknown]
  - COVID-19 [Recovered/Resolved]
  - COVID-19 [Unknown]
  - Nasopharyngitis [Unknown]
  - Viral infection [Unknown]
  - Arthropod bite [Recovered/Resolved]
  - Rhinorrhoea [Unknown]
  - Nasal congestion [Unknown]
  - Prostatomegaly [Unknown]
  - Diverticulum [Unknown]
  - Pleural effusion [Unknown]
  - Pleural thickening [Unknown]
  - Emphysema [Unknown]
  - Pulmonary granuloma [Unknown]
  - Fluid intake reduced [Unknown]
  - Increased upper airway secretion [Unknown]
  - Poor venous access [Unknown]
  - Vertebral column mass [Unknown]
  - Peripancreatic fluid collection [Unknown]
  - Pancreatic disorder [Unknown]
  - Pulmonary granuloma [Unknown]
  - Hypophagia [Unknown]
  - Platelet count increased [Unknown]
  - Mean platelet volume decreased [Unknown]
  - Vascular access complication [Unknown]
  - Dyspnoea exertional [Unknown]
  - Dyspnoea exertional [Unknown]
  - Dyspnoea exertional [Unknown]
  - Poor venous access [Unknown]
  - Cataract operation [Unknown]
  - Malaise [Unknown]
  - Wheezing [Unknown]
  - Dermatitis psoriasiform [Unknown]
  - Blood pressure increased [Unknown]
  - Abdominal discomfort [Unknown]
  - Weight decreased [Unknown]
  - Insomnia [Unknown]
  - Eczema [Unknown]
  - Hypertension [Unknown]
  - Blood creatinine increased [Unknown]
  - Myalgia [Unknown]
  - Constipation [Unknown]
  - Fatigue [Unknown]
  - Dyspnoea [Unknown]
  - Rash [Unknown]
  - Back pain [Unknown]
  - Dyspnoea [Unknown]
  - Pruritus [Unknown]
  - Inappropriate schedule of product administration [Unknown]
  - Inappropriate schedule of product administration [Unknown]
  - Inappropriate schedule of product administration [Unknown]
  - Inappropriate schedule of product administration [Unknown]
  - Product use issue [Unknown]
  - Incorrect dose administered [Unknown]
  - Product prescribing issue [Unknown]
  - Incorrect dose administered [Unknown]
  - Incorrect dose administered [Unknown]

NARRATIVE: CASE EVENT DATE: 20180615
